FAERS Safety Report 22158751 (Version 1)
Quarter: 2023Q1

REPORT INFORMATION
  Report Type: Spontaneous
  Country: PL (occurrence: PL)
  Receive Date: 20230331
  Receipt Date: 20230331
  Transmission Date: 20230418
  Serious: Yes (Life-Threatening, Hospitalization, Other)
  Sender: FDA-Public Use
  Company Number: PL-ENDO PHARMACEUTICALS INC-2023-001349

PATIENT
  Sex: Male

DRUGS (2)
  1. AVEED [Suspect]
     Active Substance: TESTOSTERONE UNDECANOATE
     Indication: Transgender hormonal therapy
     Dosage: UNK UNKNOWN, Q2W (FORTNIGHT INTERVALS)
     Route: 051
  2. UNSPECIFIED INGREDIENT [Suspect]
     Active Substance: UNSPECIFIED INGREDIENT
     Indication: Product used for unknown indication
     Dosage: UNK UNKNOWN, UNKNOWN
     Route: 065

REACTIONS (4)
  - Intentional self-injury [Recovered/Resolved]
  - Condition aggravated [Recovered/Resolved]
  - Suicide attempt [Recovered/Resolved]
  - Substance abuse [Unknown]
